FAERS Safety Report 9274837 (Version 3)
Quarter: 2013Q3

REPORT INFORMATION
  Report Type: Spontaneous
  Country: GB (occurrence: GB)
  Receive Date: 20130507
  Receipt Date: 20130904
  Transmission Date: 20140515
  Serious: Yes (Other)
  Sender: FDA-Public Use
  Company Number: GB-JNJFOC-20130418022

PATIENT
  Sex: 0

DRUGS (2)
  1. PALEXIA SR [Suspect]
     Indication: NEURALGIA
     Route: 048
  2. MORPHINE [Concomitant]
     Indication: PAIN
     Route: 065

REACTIONS (9)
  - Urinary retention [Unknown]
  - Somnolence [Unknown]
  - Hallucination [Unknown]
  - Headache [Unknown]
  - Fatigue [Unknown]
  - Constipation [Unknown]
  - Nausea [Unknown]
  - Dry mouth [Unknown]
  - Drug withdrawal syndrome [Unknown]
